FAERS Safety Report 7238388-9 (Version None)
Quarter: 2011Q1

REPORT INFORMATION
  Report Type: 
  Country: None (occurrence: None)
  Receive Date: 20110121
  Receipt Date: 20110117
  Transmission Date: 20110831
  Serious: Yes (Other)
  Sender: FDA-Public Use
  Company Number: US-US-EMD SERONO, INC.-7032541

PATIENT
  Sex: Male

DRUGS (3)
  1. REBIF [Suspect]
     Indication: MULTIPLE SCLEROSIS
     Route: 058
     Dates: start: 20100910, end: 20100101
  2. UNSPECIFIED PAIN MEDICATION [Concomitant]
     Indication: BACK DISORDER
  3. REBIF [Suspect]
     Route: 058
     Dates: start: 20100101, end: 20101215

REACTIONS (2)
  - PARANOIA [None]
  - PAIN [None]
